FAERS Safety Report 7216002-6 (Version None)
Quarter: 2011Q1

REPORT INFORMATION
  Report Type: 
  Country: None (occurrence: None)
  Receive Date: 20110104
  Receipt Date: 20110104
  Transmission Date: 20110831
  Serious: Yes (Life-Threatening)
  Sender: FDA-Public Use
  Company Number: None

PATIENT
  Sex: Male
  Weight: 55 kg

DRUGS (1)
  1. ASACOL [Suspect]
     Indication: COLITIS ULCERATIVE
     Dosage: 1600MG THREE TIMES DAILY PO
     Route: 048

REACTIONS (5)
  - ACUTE RESPIRATORY FAILURE [None]
  - PNEUMONIA [None]
  - PNEUMONITIS [None]
  - VASCULITIS [None]
  - IDIOSYNCRATIC DRUG REACTION [None]
